FAERS Safety Report 16471162 (Version 3)
Quarter: 2019Q3

REPORT INFORMATION
  Report Type: Report from Study
  Country: US (occurrence: US)
  Receive Date: 20190624
  Receipt Date: 20190924
  Transmission Date: 20191004
  Serious: Yes (Death, Hospitalization)
  Sender: FDA-Public Use
  Company Number: US-EXELIXIS-CABO-19020846

PATIENT
  Age: 67 Year
  Sex: Female

DRUGS (3)
  1. CABOMETYX [Suspect]
     Active Substance: CABOZANTINIB S-MALATE
     Indication: COLON CANCER
     Dosage: 40 MG, QD AM ON AN EMPTY STOMACH
     Dates: start: 20190418, end: 20190609
  2. CABOMETYX [Suspect]
     Active Substance: CABOZANTINIB S-MALATE
     Dosage: ALTERNATING 20 MG AND 40MG QAM
     Dates: start: 20190713, end: 2019
  3. CABOMETYX [Suspect]
     Active Substance: CABOZANTINIB S-MALATE
     Dosage: 20 MG
     Dates: start: 2019

REACTIONS (5)
  - Blister [Recovered/Resolved]
  - Off label use [Unknown]
  - Lower respiratory tract infection [Recovered/Resolved]
  - Death [Fatal]
  - Pain in extremity [Recovered/Resolved]

NARRATIVE: CASE EVENT DATE: 2019
